FAERS Safety Report 11764842 (Version 1)
Quarter: 2015Q4

REPORT INFORMATION
  Report Type: Spontaneous
  Country: US (occurrence: US)
  Receive Date: 20151120
  Receipt Date: 20151120
  Transmission Date: 20160304
  Serious: No
  Sender: FDA-Public Use
  Company Number: US-ELI_LILLY_AND_COMPANY-US201308001631

PATIENT
  Age: 68 Year
  Sex: Female

DRUGS (2)
  1. FORTEO [Suspect]
     Active Substance: TERIPARATIDE
     Indication: OSTEOPOROSIS
     Dosage: UNK, QD
     Route: 065
     Dates: start: 201305
  2. IMITREX [Concomitant]
     Active Substance: SUMATRIPTAN\SUMATRIPTAN SUCCINATE
     Indication: MIGRAINE
     Dosage: UNK

REACTIONS (9)
  - Injection site discomfort [Unknown]
  - Flushing [Unknown]
  - Malaise [Recovering/Resolving]
  - Asthenia [Unknown]
  - Dysgeusia [Unknown]
  - Hypotension [Unknown]
  - Urine output increased [Unknown]
  - Migraine [Unknown]
  - Weight decreased [Unknown]

NARRATIVE: CASE EVENT DATE: 201305
